FAERS Safety Report 8704747 (Version 2)
Quarter: 2013Q1

REPORT INFORMATION
  Report Type: Spontaneous
  Country: US (occurrence: US)
  Receive Date: 20120803
  Receipt Date: 20130201
  Transmission Date: 20140127
  Serious: Yes (Other)
  Sender: FDA-Public Use
  Company Number: US-ELI_LILLY_AND_COMPANY-US201207008414

PATIENT
  Age: 81 Year
  Sex: Female

DRUGS (4)
  1. FORTEO [Suspect]
     Indication: OSTEOPOROSIS
     Dosage: 20 UG, QD
     Dates: start: 201202
  2. FORTEO [Suspect]
     Dosage: 20 UG, QD
  3. MAGNESIUM [Concomitant]
     Dosage: UNK
  4. SYNTHROID [Concomitant]
     Dosage: UNK

REACTIONS (7)
  - Plasma cell myeloma [Unknown]
  - Malaise [Unknown]
  - Muscular weakness [Unknown]
  - Asthenia [Unknown]
  - Haemorrhagic diathesis [Unknown]
  - Epistaxis [Unknown]
  - Balance disorder [Unknown]
